FAERS Safety Report 10099392 (Version 1)
Quarter: 2014Q2

REPORT INFORMATION
  Report Type: Spontaneous
  Country: US (occurrence: US)
  Receive Date: 20140423
  Receipt Date: 20140423
  Transmission Date: 20141212
  Serious: No
  Sender: FDA-Public Use
  Company Number: US-009507513-1404USA010940

PATIENT
  Sex: 0

DRUGS (2)
  1. EMEND [Suspect]
     Indication: NAUSEA
     Dosage: VIAL SDV, MDV OR ADDITIVE (EA)
     Route: 042
  2. CISPLATIN [Concomitant]
     Dosage: UNK

REACTIONS (1)
  - Drug ineffective [Not Recovered/Not Resolved]
